FAERS Safety Report 6741317-5 (Version None)
Quarter: 2010Q2

REPORT INFORMATION
  Report Type: 
  Country: None (occurrence: None)
  Receive Date: 20100526
  Receipt Date: 20100517
  Transmission Date: 20101027
  Serious: Yes (Life-Threatening)
  Sender: FDA-Public Use
  Company Number: JP-PFIZER INC-2010049396

PATIENT
  Age: 65 Year
  Sex: Male
  Weight: 51.1 kg

DRUGS (3)
  1. SULPERAZON [Suspect]
     Indication: INFECTION PROPHYLAXIS
     Dosage: 1 G, 1X/DAY
     Route: 042
     Dates: start: 20100407, end: 20100407
  2. MIRACLID [Concomitant]
     Indication: PANCREATITIS
     Dosage: UNK
     Route: 042
     Dates: start: 20100407, end: 20100410
  3. MIRACLID [Concomitant]
     Indication: CHOLANGITIS

REACTIONS (1)
  - ANAPHYLACTIC SHOCK [None]
